FAERS Safety Report 10593075 (Version 2)
Quarter: 2014Q4

REPORT INFORMATION
  Report Type: Spontaneous
  Country: KR (occurrence: KR)
  Receive Date: 20141119
  Receipt Date: 20141202
  Transmission Date: 20150529
  Serious: Yes (Hospitalization)
  Sender: FDA-Public Use
  Company Number: KR-ABBVIE-14P-090-1308861-00

PATIENT
  Age: 20 Year
  Sex: Male

DRUGS (5)
  1. VITAMIN K [Concomitant]
     Active Substance: PHYTONADIONE
     Indication: PRODUCT USED FOR UNKNOWN INDICATION
  2. TRANEXAMIC ACID. [Concomitant]
     Active Substance: TRANEXAMIC ACID
     Indication: PRODUCT USED FOR UNKNOWN INDICATION
  3. SODIUM VALPROATE [Suspect]
     Active Substance: VALPROATE SODIUM
     Indication: SEIZURE
     Route: 065
  4. CEFTRIAXONE. [Concomitant]
     Active Substance: CEFTRIAXONE
     Indication: PRODUCT USED FOR UNKNOWN INDICATION
  5. NICARDIPINE [Concomitant]
     Active Substance: NICARDIPINE
     Indication: PRODUCT USED FOR UNKNOWN INDICATION

REACTIONS (19)
  - Lymphocyte count decreased [Unknown]
  - PCO2 decreased [Unknown]
  - Interstitial lung disease [Unknown]
  - Neutrophil count increased [Unknown]
  - Oxygen saturation decreased [Unknown]
  - White blood cell count increased [Unknown]
  - Lung consolidation [Unknown]
  - Dyspnoea [Unknown]
  - PO2 decreased [Unknown]
  - C-reactive protein increased [Unknown]
  - Blood bicarbonate decreased [Unknown]
  - Heart rate increased [Unknown]
  - Rales [Unknown]
  - Blood pH increased [Unknown]
  - Respiratory rate increased [Unknown]
  - Eosinophil count decreased [Unknown]
  - Pyrexia [Unknown]
  - Lung infiltration [Unknown]
  - Basophil count decreased [Unknown]
